FAERS Safety Report 7901075-5 (Version None)
Quarter: 2011Q4

REPORT INFORMATION
  Report Type: 
  Country: None (occurrence: None)
  Receive Date: 20111108
  Receipt Date: 20111101
  Transmission Date: 20120403
  Serious: Yes (Death)
  Sender: FDA-Public Use
  Company Number: US-ELI_LILLY_AND_COMPANY-US201111001021

PATIENT

DRUGS (4)
  1. GEMCITABINE HYDROCHLORIDE [Suspect]
     Indication: HEAD AND NECK CANCER
     Dosage: 1500 MG/M2, EVERY TWO WEEKS
  2. PEMETREXED [Suspect]
     Indication: HEAD AND NECK CANCER
     Dosage: 500 MG/M2, EVERY TWO WEEKS
  3. FOLIC ACID [Concomitant]
     Indication: SUPPLEMENTATION THERAPY
  4. VITAMIN B-12 [Concomitant]
     Indication: SUPPLEMENTATION THERAPY

REACTIONS (1)
  - RENAL FAILURE [None]
